FAERS Safety Report 6111547-4 (Version None)
Quarter: 2009Q1

REPORT INFORMATION
  Report Type: 
  Country: None (occurrence: None)
  Receive Date: 20090309
  Receipt Date: 20090220
  Transmission Date: 20090719
  Serious: Yes (Death, Hospitalization)
  Sender: FDA-Public Use
  Company Number: 2009EU000752

PATIENT
  Age: 66 Year
  Sex: Female
  Weight: 54 kg

DRUGS (9)
  1. PROGRAF [Suspect]
     Indication: RENAL TRANSPLANT
     Dosage: 1.5 MG, BID, ORAL
     Route: 048
     Dates: start: 20071101
  2. CELLCEPT [Suspect]
     Indication: RENAL TRANSPLANT
     Dosage: 500 MG, QID, ORAL
     Route: 048
     Dates: start: 20071101, end: 20081101
  3. PREDNISONE TAB [Suspect]
     Indication: RENAL TRANSPLANT
     Dosage: 5 MG,  UID/QD, ORAL
     Route: 048
     Dates: start: 20071101
  4. ASPIRIN [Concomitant]
  5. METO ZEROK (METOPOLOL SUCCINATE) COATED TABLET [Concomitant]
  6. ATACAND [Concomitant]
  7. PRAVALOTIN (PRAVASTATIN SODIUM) TABLET [Concomitant]
  8. ACTRAPID (INSULIN PORCINE) [Concomitant]
  9. LEVEMIR [Concomitant]

REACTIONS (7)
  - ACUTE RESPIRATORY DISTRESS SYNDROME [None]
  - CARDIOMEGALY [None]
  - MULTI-ORGAN FAILURE [None]
  - PNEUMOCYSTIS JIROVECI INFECTION [None]
  - PULMONARY FIBROSIS [None]
  - RESPIRATORY FAILURE [None]
  - SEPSIS [None]
